FAERS Safety Report 7373359-3 (Version None)
Quarter: 2011Q1

REPORT INFORMATION
  Report Type: 
  Country: None (occurrence: None)
  Receive Date: 20110324
  Receipt Date: 20110308
  Transmission Date: 20110831
  Serious: Yes (Other)
  Sender: FDA-Public Use
  Company Number: JP-AMGEN-JPNCT2010007479

PATIENT
  Age: 60 Year
  Sex: Male
  Weight: 56 kg

DRUGS (6)
  1. IRINOTECAN HYDROCHLORIDE [Suspect]
     Indication: COLORECTAL CANCER
     Dosage: 195.6 MG, Q2WK
     Route: 041
     Dates: start: 20100901, end: 20101020
  2. FLUOROURACIL [Suspect]
     Indication: COLORECTAL CANCER
     Dosage: 500 MG, Q2WK
     Route: 040
     Dates: start: 20100901, end: 20101020
  3. FLUOROURACIL [Suspect]
     Dosage: 3000 MG, Q2WK
     Route: 041
     Dates: start: 20100901, end: 20101020
  4. URSO 250 [Concomitant]
     Dosage: UNK
     Route: 048
  5. PANITUMUMAB [Suspect]
     Indication: COLORECTAL CANCER
     Dosage: 6 MG/KG, Q2WK
     Route: 041
     Dates: start: 20100901, end: 20101020
  6. CALCIUM LEVOFOLINATE [Concomitant]
     Indication: COLORECTAL CANCER
     Dosage: 250 MG, Q2WK
     Route: 041
     Dates: start: 20100901, end: 20101020

REACTIONS (3)
  - STOMATITIS [None]
  - ACNE [None]
  - BONE MARROW FAILURE [None]
